FAERS Safety Report 12488579 (Version 2)
Quarter: 2017Q1

REPORT INFORMATION
  Report Type: Report from Study
  Country: US (occurrence: US)
  Receive Date: 20160622
  Receipt Date: 20170130
  Transmission Date: 20170428
  Serious: Yes (Hospitalization)
  Sender: FDA-Public Use
  Company Number: PHHO2016US003813

PATIENT
  Age: 55 Year
  Sex: Female

DRUGS (60)
  1. LUCENTIS [Suspect]
     Active Substance: RANIBIZUMAB
     Dosage: RIGHT EYE; LEFT EYE: PAN-RETINAL PHOTOCOAGULATION
     Route: 031
     Dates: start: 20130110
  2. LUCENTIS [Suspect]
     Active Substance: RANIBIZUMAB
     Dosage: IN RIGHT EYE
     Route: 031
     Dates: start: 20130207
  3. LUCENTIS [Suspect]
     Active Substance: RANIBIZUMAB
     Dosage: IN RIGHT AND LEFT EYE
     Route: 031
     Dates: start: 20140624
  4. LUCENTIS [Suspect]
     Active Substance: RANIBIZUMAB
     Dosage: IN RIGHT AND LEFT EYE
     Route: 031
     Dates: start: 20150421
  5. PAROXETINE. [Concomitant]
     Active Substance: PAROXETINE
     Indication: ANXIETY
     Dosage: 40 MG, QD (6 MONTHS TO { 1 YEAR AT THE TIME OF ENROLLMENT)
     Route: 048
  6. NOVOLIN 70/30 [Concomitant]
     Active Substance: INSULIN HUMAN
     Indication: DIABETES MELLITUS
     Dosage: }=10 YEARS AT THE TIME OF ENROLLMENT
     Route: 058
     Dates: end: 2012
  7. NPH INSULIN [Concomitant]
     Active Substance: INSULIN BEEF
     Indication: DIABETES MELLITUS
     Dosage: 30 UNITS, BID
     Route: 058
     Dates: start: 20140420
  8. LUCENTIS [Suspect]
     Active Substance: RANIBIZUMAB
     Dosage: IN RIGHT EYE
     Route: 031
     Dates: start: 20140313
  9. LUCENTIS [Suspect]
     Active Substance: RANIBIZUMAB
     Dosage: IN RIGHT EYE
     Route: 031
     Dates: start: 20160204
  10. LISINOPRIL. [Concomitant]
     Active Substance: LISINOPRIL
     Indication: HYPERTENSION
     Dosage: 40 MG, QD (5 YEARS TO { 10 YEARS AT THE TIME OF ENROLLMENT)
     Route: 048
     Dates: end: 2012
  11. POLYMYXIN B. [Concomitant]
     Active Substance: POLYMYXIN B
     Indication: PROPHYLAXIS
     Dosage: 1 GTT, QID
     Route: 047
     Dates: start: 20130510, end: 20130510
  12. PREDNISOLONE ACETATE. [Concomitant]
     Active Substance: PREDNISOLONE ACETATE
     Indication: PROPHYLAXIS
     Dosage: 1 DRP, QID
     Route: 047
     Dates: start: 20130510, end: 20130514
  13. NITROFURANTIN [Concomitant]
     Active Substance: NITROFURANTOIN
     Indication: PRODUCT USED FOR UNKNOWN INDICATION
     Route: 048
     Dates: start: 20160819, end: 20160829
  14. LUCENTIS [Suspect]
     Active Substance: RANIBIZUMAB
     Dosage: IN RIGHT EYE
     Route: 031
     Dates: start: 20131121
  15. LUCENTIS [Suspect]
     Active Substance: RANIBIZUMAB
     Dosage: IN RIGHT AND LEFT EYE
     Route: 031
     Dates: start: 20141211
  16. LUCENTIS [Suspect]
     Active Substance: RANIBIZUMAB
     Dosage: IN RIGHT AND LEFT EYE
     Route: 031
     Dates: start: 20150219
  17. LUCENTIS [Suspect]
     Active Substance: RANIBIZUMAB
     Dosage: EYE:OS
     Route: 031
     Dates: start: 20160510
  18. ASPIRIN. [Concomitant]
     Active Substance: ASPIRIN
     Indication: HYPERTENSION
     Dosage: 81 MG, QD ( 1 YEAR TO { 5 YEARS AT THE TIME OF ENROLLMENT)
     Route: 045
  19. LORATADINE. [Concomitant]
     Active Substance: LORATADINE
     Indication: RHINITIS ALLERGIC
     Dosage: 10 MG, QD (1 YEAR TO { 5 YEARS AT THE TIME OF ENROLLMENT)
     Route: 048
     Dates: end: 201207
  20. AMITRIPTYLINE [Concomitant]
     Active Substance: AMITRIPTYLINE
     Indication: HERPES ZOSTER
     Dosage: 10 MG, BID ({=30 DAYS AT THE TIME OF ENROLLMENT)
     Route: 048
     Dates: end: 201401
  21. WELLBUTRIN [Concomitant]
     Active Substance: BUPROPION HYDROCHLORIDE
     Indication: ANXIETY
     Dosage: 150 MG, QD
     Route: 048
     Dates: start: 20141103
  22. CLONAZEPAM. [Suspect]
     Active Substance: CLONAZEPAM
     Indication: ANXIETY
     Dosage: 0.5 MG, QD (1 YEAR TO { 5 YEARS AT THE TIME OF ENROLLMENT)
     Route: 048
     Dates: end: 201407
  23. LUCENTIS [Suspect]
     Active Substance: RANIBIZUMAB
     Indication: DIABETIC RETINOPATHY
     Dosage: RIGHT EYE; LEFT EYE: PAN-RETINAL PHOTOCOAGULATION
     Route: 031
     Dates: start: 20121213
  24. LUCENTIS [Suspect]
     Active Substance: RANIBIZUMAB
     Dosage: IN RIGHT EYE
     Route: 031
     Dates: start: 20130509
  25. LUCENTIS [Suspect]
     Active Substance: RANIBIZUMAB
     Dosage: IN RIGHT EYE
     Route: 031
     Dates: start: 20130725
  26. LUCENTIS [Suspect]
     Active Substance: RANIBIZUMAB
     Dosage: IN RIGHT EYE
     Route: 031
     Dates: start: 20130919
  27. LUCENTIS [Suspect]
     Active Substance: RANIBIZUMAB
     Dosage: IN RIGHT AND LEFT EYE
     Route: 031
     Dates: start: 20140501
  28. LUCENTIS [Suspect]
     Active Substance: RANIBIZUMAB
     Dosage: IN RIGHT EYE
     Route: 031
     Dates: start: 20150908
  29. FLUNISOLIDE. [Concomitant]
     Active Substance: FLUNISOLIDE
     Indication: ASTHMA
     Dosage: FREQUENCY: 2 TO 3 PER MONTH; ORAL INHALATION; 1 YEAR TO { 5 YEARS AT THE TIME OF ENROLLMENT
     Dates: end: 201406
  30. CEPHALEXIN. [Concomitant]
     Active Substance: CEPHALEXIN
     Indication: CELLULITIS
     Dosage: 500 MG, QID (4 IN 1 D)
     Route: 048
     Dates: start: 20130720, end: 201308
  31. IBUPROFEN. [Concomitant]
     Active Substance: IBUPROFEN
     Indication: PROPHYLAXIS
     Dosage: 200 MG, QD (FREQUENCY: } 1 PER DAY{=30 DAYS AT THE TIME OF ENROLLMENT)
     Route: 048
     Dates: end: 201407
  32. SYSTANE (HYPROMELLOSE 2910 (4000 MPA.S)) [Concomitant]
     Active Substance: HYPROMELLOSE 2910 (4000 MPA.S)
     Indication: PROPHYLAXIS
     Dosage: 1 DRP, ({=30 DAYS AT THE TIME OF ENROLLMENT)
     Route: 047
  33. LUCENTIS [Suspect]
     Active Substance: RANIBIZUMAB
     Dosage: IN RIGHT EYE
     Route: 031
     Dates: start: 20130627
  34. LUCENTIS [Suspect]
     Active Substance: RANIBIZUMAB
     Dosage: IN RIGHT EYE
     Route: 031
     Dates: start: 20140206
  35. LUCENTIS [Suspect]
     Active Substance: RANIBIZUMAB
     Dosage: IN RIGHT AND LEFT EYE
     Route: 031
     Dates: start: 20140529
  36. LUCENTIS [Suspect]
     Active Substance: RANIBIZUMAB
     Dosage: IN RIGHT AND LEFT EYE
     Route: 031
     Dates: start: 20141106
  37. LISINOPRIL. [Concomitant]
     Active Substance: LISINOPRIL
     Dosage: 5 MG, QD (5 YEARS TO { 10 YEARS AT THE TIME OF ENROLLMENT)
     Route: 048
     Dates: start: 20141103
  38. ACYCLOVIR. [Concomitant]
     Active Substance: ACYCLOVIR
     Indication: HERPES ZOSTER
     Dosage: 800 MG, 5QD ({=30 DAYS AT THE TIME OF ENROLLMENT)
     Route: 048
     Dates: end: 201301
  39. SIMVASTATIN. [Concomitant]
     Active Substance: SIMVASTATIN
     Indication: HYPERCHOLESTEROLAEMIA
     Dosage: 40 MG, QD (1 YEAR TO { 5 YEARS AT THE TIME OF ENROLLMENT)
     Route: 048
     Dates: end: 201404
  40. SYSTANE (HYPROMELLOSE 2910 (4000 MPA.S)) [Concomitant]
     Active Substance: HYPROMELLOSE 2910 (4000 MPA.S)
     Dosage: {=30 DAYS AT THE TIME OF ENROLLMENT
     Route: 047
  41. INSULIN HUMAN [Concomitant]
     Active Substance: INSULIN HUMAN
     Indication: DIABETES MELLITUS
     Dosage: 12 UNITS, BID
     Route: 058
     Dates: start: 20140420
  42. INSULIN HUMAN [Concomitant]
     Active Substance: INSULIN HUMAN
     Dosage: 12 UNITS, BID
     Route: 058
     Dates: start: 20140618
  43. LUCENTIS [Suspect]
     Active Substance: RANIBIZUMAB
     Dosage: IN RIGHT AND LEFT EYE
     Route: 031
     Dates: start: 20150115
  44. LUCENTIS [Suspect]
     Active Substance: RANIBIZUMAB
     Dosage: IN RIGHT AND LEFT EYE
     Route: 031
     Dates: start: 20160324
  45. PREDNISOLONE. [Concomitant]
     Active Substance: PREDNISOLONE
     Indication: PROPHYLAXIS
     Dosage: 1 GTT, BID
     Route: 047
     Dates: start: 20130514, end: 201306
  46. VOLTAREN [Concomitant]
     Active Substance: DICLOFENAC SODIUM
     Indication: PROPHYLAXIS
     Dosage: 1 GTT, QID
     Route: 047
     Dates: start: 20130510, end: 201305
  47. CEPHALEXIN. [Concomitant]
     Active Substance: CEPHALEXIN
     Indication: ABSCESS
     Dosage: 500 MG, QD
     Route: 048
     Dates: start: 20140420, end: 20140430
  48. LIPITOR [Concomitant]
     Active Substance: ATORVASTATIN CALCIUM
     Indication: HYPERCHOLESTEROLAEMIA
     Dosage: 80 MG, QD
     Route: 048
     Dates: start: 20140617
  49. LUCENTIS [Suspect]
     Active Substance: RANIBIZUMAB
     Dosage: IN RIGHT AND LEFT EYE
     Route: 031
     Dates: start: 20140904
  50. LUCENTIS [Suspect]
     Active Substance: RANIBIZUMAB
     Dosage: IN RIGHT AND LEFT EYE
     Route: 031
     Dates: start: 20141002
  51. LUCENTIS [Suspect]
     Active Substance: RANIBIZUMAB
     Dosage: IN RIGHT AND LEFT EYE
     Route: 031
     Dates: start: 20150618
  52. LISINOPRIL. [Concomitant]
     Active Substance: LISINOPRIL
     Dosage: 10 MG, QD (5 YEARS TO { 10 YEARS AT THE TIME OF ENROLLMENT)
     Route: 048
     Dates: start: 20140617, end: 20141103
  53. LUCENTIS [Suspect]
     Active Substance: RANIBIZUMAB
     Dosage: IN RIGHT EYE
     Route: 031
     Dates: start: 20130307
  54. LUCENTIS [Suspect]
     Active Substance: RANIBIZUMAB
     Dosage: IN LEFT EYE
     Route: 031
     Dates: start: 20130702
  55. LUCENTIS [Suspect]
     Active Substance: RANIBIZUMAB
     Dosage: IN RIGHT EYE
     Route: 031
     Dates: start: 20131017
  56. LUCENTIS [Suspect]
     Active Substance: RANIBIZUMAB
     Dosage: IN RIGHT EYE
     Route: 031
     Dates: start: 20140724
  57. LUCENTIS [Suspect]
     Active Substance: RANIBIZUMAB
     Dosage: RIGHT EYE
     Route: 031
     Dates: start: 20160929, end: 20160929
  58. METFORMIN [Concomitant]
     Active Substance: METFORMIN HYDROCHLORIDE
     Indication: DIABETES MELLITUS
     Dosage: }=10 YEARS AT THE TIME OF ENROLLMENT
     Route: 048
     Dates: end: 201207
  59. ATORVASTATIN [Concomitant]
     Active Substance: ATORVASTATIN
     Indication: HYPERCHOLESTEROLAEMIA
     Dosage: 40 MG, QD
     Route: 048
     Dates: start: 20140420
  60. ACETIC ACID. [Concomitant]
     Active Substance: ACETIC ACID
     Indication: PRODUCT USED FOR UNKNOWN INDICATION
     Route: 065
     Dates: start: 20160819, end: 20160829

REACTIONS (5)
  - Hyperglycaemia [Recovered/Resolved with Sequelae]
  - Dehydration [Recovered/Resolved with Sequelae]
  - Diarrhoea [Recovered/Resolved with Sequelae]
  - Urinary tract infection [Recovered/Resolved with Sequelae]
  - Nausea [Recovered/Resolved with Sequelae]

NARRATIVE: CASE EVENT DATE: 20151209
